FAERS Safety Report 19208109 (Version 1)
Quarter: 2021Q2

REPORT INFORMATION
  Report Type: Spontaneous
  Country: GB (occurrence: GB)
  Receive Date: 20210503
  Receipt Date: 20210503
  Transmission Date: 20210717
  Serious: Yes (Life-Threatening, Hospitalization)
  Sender: FDA-Public Use
  Company Number: GB-TEVA-2021-GB-1906232

PATIENT
  Age: 34 Year
  Sex: Male
  Weight: 83 kg

DRUGS (1)
  1. PROPRANOLOL [Suspect]
     Active Substance: PROPRANOLOL HYDROCHLORIDE
     Indication: DEPRESSION
     Dosage: 120 MILLIGRAM DAILY; 40MG (AS PER GP RECORD)
     Route: 048
     Dates: start: 20210412, end: 20210413

REACTIONS (1)
  - Cardiac arrest [Recovering/Resolving]

NARRATIVE: CASE EVENT DATE: 20210413
